FAERS Safety Report 20594358 (Version 1)
Quarter: 2022Q1

REPORT INFORMATION
  Report Type: Spontaneous
  Country: HK (occurrence: HK)
  Receive Date: 20220315
  Receipt Date: 20220315
  Transmission Date: 20220423
  Serious: Yes (Death, Life-Threatening, Hospitalization, Other)
  Sender: FDA-Public Use
  Company Number: HK-AMGEN-HKGSP2022042117

PATIENT

DRUGS (8)
  1. FILGRASTIM [Suspect]
     Active Substance: FILGRASTIM
     Indication: Prophylaxis
     Dosage: 30 MICROGRAM, QD STARTING FROM DAY 3 FOR 1 WEEK
     Route: 065
  2. PEGFILGRASTIM [Suspect]
     Active Substance: PEGFILGRASTIM
     Indication: Prophylaxis
     Dosage: UNK (LONG ACTING ON DAY 3)
     Route: 065
  3. DOCETAXEL [Concomitant]
     Active Substance: DOCETAXEL
     Indication: HER2 negative breast cancer
     Dosage: 75 MILLIGRAM/SQ. METER, Q3WK FOR ATLEAST 6 CYCLE
     Route: 042
  4. EPIRUBICIN [Concomitant]
     Active Substance: EPIRUBICIN
     Indication: HER2 negative breast cancer
     Dosage: 75 MILLIGRAM/SQ. METER, Q3WK  FOR AT LEAST 6 CYCLES
     Route: 042
  5. CYCLOPHOSPHAMIDE [Concomitant]
     Active Substance: CYCLOPHOSPHAMIDE
     Indication: HER2 negative breast cancer
     Dosage: 500 MILLIGRAM/SQ. METER, Q3WK FOR AT LEAST 6 CYCLE
     Route: 042
  6. ONDANSETRON [Concomitant]
     Active Substance: ONDANSETRON
     Dosage: UNK
  7. DEXAMETHASONE [Concomitant]
     Active Substance: DEXAMETHASONE
     Dosage: UNK
  8. APREPITANT [Concomitant]
     Active Substance: APREPITANT
     Dosage: UNK

REACTIONS (3)
  - Breast cancer recurrent [Fatal]
  - Sepsis [Unknown]
  - Pneumonia [Unknown]
